FAERS Safety Report 11508680 (Version 1)
Quarter: 2015Q3

REPORT INFORMATION
  Report Type: Spontaneous
  Country: US (occurrence: US)
  Receive Date: 20150903
  Receipt Date: 20150903
  Transmission Date: 20151125
  Serious: No
  Sender: FDA-Public Use
  Company Number: US-ELI_LILLY_AND_COMPANY-US200902002258

PATIENT
  Age: 38 Year
  Sex: Female

DRUGS (3)
  1. DUET DHA [Concomitant]
     Active Substance: .ALPHA.-TOCOPHEROL ACETATE, D-\ASCORBIC ACID\BETA CAROTENE\CALCIUM CARBONATE\CHOLECALCIFEROL\CUPRIC OXIDE\CYANOCOBALAMIN\FOLIC ACID\IODINE\IRON\MAGNESIUM OXIDE\NIACINAMIDE\OMEGA-3 FATTY ACIDS\PYRIDOXINE HYDROCHLORIDE\RIBOFLAVIN\THIAMINE MONONITRATE\ZINC OXIDE
     Indication: PRENATAL CARE
     Dosage: UNK, DAILY (1/D)
     Dates: start: 20090801
  2. HUMALOG MIX75/25 [Suspect]
     Active Substance: INSULIN LISPRO
     Dosage: UNK, 2/D
     Dates: start: 200901, end: 20090403
  3. HUMALOG MIX75/25 [Suspect]
     Active Substance: INSULIN LISPRO
     Dosage: UNK, 2/D
     Dates: start: 200901, end: 20090403

REACTIONS (2)
  - Foetal exposure during pregnancy [Recovered/Resolved]
  - Blood glucose increased [Not Recovered/Not Resolved]

NARRATIVE: CASE EVENT DATE: 20090206
